FAERS Safety Report 4491849-8 (Version None)
Quarter: 2004Q4

REPORT INFORMATION
  Report Type: 
  Country: None (occurrence: None)
  Receive Date: 20041028
  Receipt Date: 20041028
  Transmission Date: 20050328
  Serious: Yes (Hospitalization)
  Sender: FDA-Public Use
  Company Number: None

PATIENT
  Age: 68 Year
  Sex: Female
  Weight: 46.8 kg

DRUGS (5)
  1. LISINOPRIL [Suspect]
     Indication: HYPERTENSION
     Dosage: 20 MG QD ORAL
     Route: 048
     Dates: start: 20040601, end: 20040818
  2. LEXAPRO [Concomitant]
  3. LIPITOR [Concomitant]
  4. GLUCOPHAGE [Concomitant]
  5. STARLIX [Concomitant]

REACTIONS (5)
  - ANGIONEUROTIC OEDEMA [None]
  - DERMATITIS BULLOUS [None]
  - ERYTHEMA [None]
  - EYE REDNESS [None]
  - EYE SWELLING [None]
